FAERS Safety Report 9261959 (Version 1)
Quarter: 2013Q2

REPORT INFORMATION
  Report Type: Spontaneous
  Country: US (occurrence: US)
  Receive Date: 20130429
  Receipt Date: 20130429
  Transmission Date: 20140414
  Serious: Yes (Hospitalization)
  Sender: FDA-Public Use
  Company Number: US-B.I. PHARMACEUTICALS,INC./RIDGEFIELD-2013-BI-10759BP

PATIENT
  Age: 63 Year
  Sex: Male
  Weight: 91 kg

DRUGS (14)
  1. SPIRIVA [Suspect]
     Indication: CHRONIC OBSTRUCTIVE PULMONARY DISEASE
     Dosage: 18 MCG
     Route: 055
     Dates: start: 2005
  2. PROAIR [Concomitant]
     Indication: CHRONIC OBSTRUCTIVE PULMONARY DISEASE
     Route: 055
  3. METFORMIN [Concomitant]
     Indication: DIABETES MELLITUS
     Dosage: (TABLET) STRENGTH: 1000 MG; DAILY DOSE: 2000 MG
     Route: 048
  4. GLIBERIDE [Concomitant]
     Indication: DIABETES MELLITUS
     Dosage: 5 MG
     Route: 048
  5. KLONOPIN [Concomitant]
     Indication: PANIC DISORDER
     Dosage: 3 MG
     Route: 048
  6. LISINOPRIL [Concomitant]
     Indication: HYPERTENSION
     Dosage: 2.5 MG
     Route: 048
  7. ATENOLOL [Concomitant]
     Indication: CARDIAC DISORDER
     Dosage: 100 MG
     Route: 048
  8. NITROGLYCERIN [Concomitant]
     Route: 048
  9. ISOSORBIDE [Concomitant]
     Dosage: 120 MG
     Route: 048
  10. ASPIRIN [Concomitant]
     Dosage: 325 MG
     Route: 048
  11. TOBRAMYCIN EYE DROPS [Concomitant]
     Indication: CATARACT
  12. ALBUTEROL NEBULIZER [Concomitant]
     Route: 055
  13. SIMVASTATIN [Concomitant]
     Indication: BLOOD CHOLESTEROL INCREASED
     Dosage: 40 MG
     Route: 048
  14. PEPCID [Concomitant]
     Dosage: 40 MG
     Route: 048

REACTIONS (1)
  - Myocardial infarction [Recovered/Resolved]
